FAERS Safety Report 9306928 (Version 2)
Quarter: 2013Q2

REPORT INFORMATION
  Report Type: Report from Study
  Country: CA (occurrence: CA)
  Receive Date: 20130523
  Receipt Date: 20130527
  Transmission Date: 20140414
  Serious: Yes (Death)
  Sender: FDA-Public Use
  Company Number: PHHY2013CA051879

PATIENT
  Age: 53 Year
  Sex: Male

DRUGS (2)
  1. CLOZARIL [Suspect]
     Indication: SCHIZOPHRENIA
     Dosage: 500 UKN, UNK
     Route: 048
     Dates: start: 20090629, end: 20130518
  2. LAMICTAL [Concomitant]
     Dosage: 75 MG, UNK

REACTIONS (1)
  - Schizophrenia [Fatal]
